FAERS Safety Report 23309057 (Version 1)
Quarter: 2023Q4

REPORT INFORMATION
  Report Type: Spontaneous
  Country: FR (occurrence: FR)
  Receive Date: 20231218
  Receipt Date: 20231218
  Transmission Date: 20240110
  Serious: Yes (Hospitalization)
  Sender: FDA-Public Use
  Company Number: None

PATIENT
  Age: 45 Year
  Weight: 57 kg

DRUGS (9)
  1. PREDNISOLONE [Suspect]
     Active Substance: PREDNISOLONE
     Indication: Lung disorder
     Route: 048
     Dates: start: 20221006, end: 20221012
  2. VERAPAMIL HYDROCHLORIDE [Concomitant]
     Active Substance: VERAPAMIL HYDROCHLORIDE
  3. ASPIRIN [Concomitant]
     Active Substance: ASPIRIN
  4. CIPROFLOXACIN [Suspect]
     Active Substance: CIPROFLOXACIN
     Indication: Lung disorder
     Dosage: 500MG 2X/DAY, CIPROFLOXACIN ARROW GENERICS 500 MG, FILM-COATED TABLET
     Route: 048
     Dates: start: 20221008, end: 20221014
  5. MORPHINE [Concomitant]
     Active Substance: MORPHINE
  6. AMITRIPTYLINE [Concomitant]
     Active Substance: AMITRIPTYLINE
  7. RAMIPRIL [Concomitant]
     Active Substance: RAMIPRIL
  8. THEOPHYLLINE [Concomitant]
     Active Substance: THEOPHYLLINE
  9. FORADIL [Suspect]
     Active Substance: FORMOTEROL FUMARATE
     Indication: Lung disorder
     Dosage: 1 INHALATION PER DAY
     Route: 055
     Dates: start: 20221007, end: 20221012

REACTIONS (1)
  - Rash maculo-papular [Recovered/Resolved]

NARRATIVE: CASE EVENT DATE: 20221012
